FAERS Safety Report 7589400-9 (Version None)
Quarter: 2011Q2

REPORT INFORMATION
  Report Type: 
  Country: None (occurrence: None)
  Receive Date: 20110627
  Receipt Date: 20110615
  Transmission Date: 20111010
  Serious: Yes (Other)
  Sender: FDA-Public Use
  Company Number: US-2011-10411

PATIENT
  Age: 3 Year
  Sex: Male

DRUGS (1)
  1. BUSULFAN [Suspect]
     Indication: STEM CELL TRANSPLANT
     Dosage: 2 MG/KG, DAILY DOSE, INTRAVENOUS
     Route: 042

REACTIONS (3)
  - ABDOMINAL NEOPLASM [None]
  - PURINE METABOLISM DISORDER [None]
  - IMMUNE RECONSTITUTION SYNDROME [None]
